FAERS Safety Report 23272194 (Version 1)
Quarter: 2023Q4

REPORT INFORMATION
  Report Type: Spontaneous
  Country: US (occurrence: US)
  Receive Date: 20231207
  Receipt Date: 20231207
  Transmission Date: 20240110
  Serious: No
  Sender: FDA-Public Use
  Company Number: US-ACELLA PHARMACEUTICALS, LLC-2023ALO00006

PATIENT
  Sex: Female
  Weight: 54.422 kg

DRUGS (3)
  1. DHIVY [Suspect]
     Active Substance: CARBIDOPA\LEVODOPA
     Indication: Parkinson^s disease
     Dosage: 1.75 TABLETS, 6X/DAY (ABOUT EVERY 3 HOURS)
     Route: 048
     Dates: start: 20230720, end: 2023
  2. DHIVY [Suspect]
     Active Substance: CARBIDOPA\LEVODOPA
     Dosage: 1.5 TABLETS, 6X/DAY (ABOUT EVERY 3 HOURS)
     Route: 048
     Dates: start: 202307, end: 2023
  3. DHIVY [Suspect]
     Active Substance: CARBIDOPA\LEVODOPA
     Dosage: 1.75 TABLETS, 6X/DAY (ABOUT EVERY 3 HOURS)
     Route: 048
     Dates: start: 2023

REACTIONS (8)
  - Freezing phenomenon [Not Recovered/Not Resolved]
  - Head discomfort [Not Recovered/Not Resolved]
  - Feeling abnormal [Not Recovered/Not Resolved]
  - Therapeutic response shortened [Not Recovered/Not Resolved]
  - Prescribed overdose [Not Recovered/Not Resolved]
  - Dyskinesia [Not Recovered/Not Resolved]
  - Product use complaint [Not Recovered/Not Resolved]
  - Product physical issue [Not Recovered/Not Resolved]

NARRATIVE: CASE EVENT DATE: 20230101
